FAERS Safety Report 6045444-X (Version None)
Quarter: 2009Q1

REPORT INFORMATION
  Report Type: 
  Country: None (occurrence: None)
  Receive Date: 20090121
  Receipt Date: 20090109
  Transmission Date: 20090719
  Serious: Yes (Death, Hospitalization, Other)
  Sender: FDA-Public Use
  Company Number: JP-PFIZER INC-2008087196

PATIENT

DRUGS (2)
  1. VORICONAZOLE [Suspect]
     Dosage: UNK
     Route: 048
     Dates: start: 20080718, end: 20080718
  2. RESPLEN [Concomitant]
     Indication: COUGH
     Route: 048
     Dates: start: 20080718, end: 20080731

REACTIONS (3)
  - CARDIO-RESPIRATORY ARREST [None]
  - HYPONATRAEMIA [None]
  - SKIN LACERATION [None]
